FAERS Safety Report 10688361 (Version 1)
Quarter: 2014Q4

REPORT INFORMATION
  Report Type: Spontaneous
  Country: US (occurrence: None)
  Receive Date: 20141231
  Receipt Date: 20141231
  Transmission Date: 20150529
  Serious: Yes (Other)
  Sender: FDA-Public Use
  Company Number: 2014-US-016988

PATIENT
  Sex: Female
  Weight: 83.4 kg

DRUGS (10)
  1. SUPER B COMPLEX (VITAMIN B COMPLEX) [Concomitant]
  2. ADDERALL [Concomitant]
     Active Substance: AMPHETAMINE ASPARTATE\AMPHETAMINE SULFATE\DEXTROAMPHETAMINE SACCHARATE\DEXTROAMPHETAMINE SULFATE
  3. CALCIUM W/ MAGNESIUM/VITAMIN D NOS/ZINC (CALCIUM, MAGNESIUM, VITAMIN D NOS, ZINC) [Concomitant]
  4. VITAMIN D3 [Concomitant]
     Active Substance: CHOLECALCIFEROL
  5. XYREM [Suspect]
     Active Substance: SODIUM OXYBATE
     Indication: CATAPLEXY
     Dosage: 2.25 G,  BID,  ORAL
     Route: 048
     Dates: start: 201005, end: 2010
  6. AMLODIPINE [Concomitant]
     Active Substance: AMLODIPINE BESYLATE
  7. OMEGA-3 FATTY ACIDS (OMEGA-3 FATTY ACIDS) [Concomitant]
  8. XYREM [Suspect]
     Active Substance: SODIUM OXYBATE
     Indication: NARCOLEPSY
     Dosage: 2.25 G,  BID,  ORAL
     Route: 048
     Dates: start: 201005, end: 2010
  9. HYDROXYCHLOROQUINE (HYDROXYCHLOROQUINE) [Concomitant]
  10. ESTRADIOL W/TESTOSTERONE (ESTRADIOL W/TESTOSTERONE) [Concomitant]

REACTIONS (3)
  - Sleep apnoea syndrome [None]
  - Blood pressure increased [None]
  - Weight decreased [None]
